FAERS Safety Report 7383182-1 (Version None)
Quarter: 2011Q1

REPORT INFORMATION
  Report Type: 
  Country: None (occurrence: None)
  Receive Date: 20110330
  Receipt Date: 20110321
  Transmission Date: 20110831
  Serious: Yes (Hospitalization, Other)
  Sender: FDA-Public Use
  Company Number: US-ASTRAZENECA-2009UW05893

PATIENT
  Age: 60 Year
  Sex: Female
  Weight: 72.6 kg

DRUGS (19)
  1. NEXIUM [Suspect]
     Indication: GASTROOESOPHAGEAL REFLUX DISEASE
     Route: 048
  2. LYRICA [Concomitant]
  3. KEPPRA [Concomitant]
  4. ATIVAN [Concomitant]
  5. MULTIPLE VITAMIN [Concomitant]
  6. ESTRACE [Concomitant]
  7. IMODIUM [Concomitant]
  8. HYDROCODONE BITARTRATE + ACETAMINOPHEN [Concomitant]
  9. CLARITIN [Concomitant]
  10. PRILOSEC [Suspect]
     Route: 048
  11. SEROQUEL [Suspect]
     Indication: BIPOLAR DISORDER
     Route: 048
  12. OSCAL [Concomitant]
  13. NEXIUM [Suspect]
     Route: 048
  14. SEROQUEL [Suspect]
     Route: 048
     Dates: start: 19970101
  15. SEROQUEL [Suspect]
     Route: 048
  16. LEVOTHYROXINE SODIUM [Concomitant]
  17. ACETAMINOPHEN [Concomitant]
  18. SINGULAIR [Concomitant]
  19. LAMICTAL [Concomitant]

REACTIONS (4)
  - HYPOMANIA [None]
  - NASOPHARYNGITIS [None]
  - LOWER LIMB FRACTURE [None]
  - ENCEPHALITIS [None]
